FAERS Safety Report 11242153 (Version 2)
Quarter: 2015Q3

REPORT INFORMATION
  Report Type: Spontaneous
  Country: CH (occurrence: CH)
  Receive Date: 20150706
  Receipt Date: 20150825
  Transmission Date: 20151125
  Serious: Yes (Hospitalization)
  Sender: FDA-Public Use
  Company Number: CH-ROCHE-1603417

PATIENT
  Age: 31 Year
  Sex: Female
  Weight: 57 kg

DRUGS (6)
  1. ATACAND [Concomitant]
     Active Substance: CANDESARTAN CILEXETIL
     Dosage: ADMINISTRATION AFTER APPEARANCE OF PROTEINURIA
     Route: 048
     Dates: start: 20150624
  2. MABTHERA [Suspect]
     Active Substance: RITUXIMAB
     Route: 042
     Dates: start: 20150617, end: 20150618
  3. VI-DE 3 [Concomitant]
     Active Substance: CHOLECALCIFEROL
     Route: 048
  4. MABTHERA [Suspect]
     Active Substance: RITUXIMAB
     Indication: GLOMERULONEPHRITIS MEMBRANOPROLIFERATIVE
     Route: 042
  5. MABTHERA [Suspect]
     Active Substance: RITUXIMAB
     Route: 041
     Dates: start: 20150617, end: 20150619
  6. ARANESP [Concomitant]
     Active Substance: DARBEPOETIN ALFA
     Dosage: 80 MCG/0.4 ML,?NEXT ADMINISTRATION ON 04/JUN/2015
     Route: 058

REACTIONS (14)
  - Off label use [Unknown]
  - Hypersensitivity [Recovered/Resolved]
  - Renal failure [Unknown]
  - Rash pruritic [Recovered/Resolved]
  - Abdominal pain [Recovered/Resolved]
  - Rash [Unknown]
  - Posterior reversible encephalopathy syndrome [Recovered/Resolved]
  - Hypotension [Recovered/Resolved]
  - Pyrexia [Recovered/Resolved]
  - Hypersensitivity [Recovered/Resolved]
  - Anaemia [Recovering/Resolving]
  - Thrombocytopenia [Recovered/Resolved]
  - Leukopenia [Recovered/Resolved]
  - Diarrhoea [Recovered/Resolved]

NARRATIVE: CASE EVENT DATE: 20150622
